FAERS Safety Report 16446225 (Version 1)
Quarter: 2019Q2

REPORT INFORMATION
  Report Type: Spontaneous
  Country: ES (occurrence: ES)
  Receive Date: 20190618
  Receipt Date: 20190618
  Transmission Date: 20190711
  Serious: Yes (Other)
  Sender: FDA-Public Use
  Company Number: ES-ALSI-201900271

PATIENT
  Age: 85 Year
  Sex: Female
  Weight: 81 kg

DRUGS (7)
  1. SOTALOL. [Suspect]
     Active Substance: SOTALOL
     Dates: start: 20190214
  2. XARELTO [Suspect]
     Active Substance: RIVAROXABAN
     Route: 048
     Dates: start: 20190326, end: 20190430
  3. ACETYLSALICYLIC ACID [Suspect]
     Active Substance: ASPIRIN
     Dates: start: 20190424, end: 20190524
  4. OMEPRAZOLE. [Suspect]
     Active Substance: OMEPRAZOLE
     Dates: start: 20190430
  5. CLOPIDOGREL [Suspect]
     Active Substance: CLOPIDOGREL BISULFATE
     Dates: start: 20190509, end: 20190524
  6. OXYGEN. [Suspect]
     Active Substance: OXYGEN
     Indication: PRODUCT USED FOR UNKNOWN INDICATION
     Route: 048
     Dates: start: 20190524, end: 20190605
  7. IRON [Suspect]
     Active Substance: IRON
     Dates: start: 20190417

REACTIONS (1)
  - Gastrointestinal haemorrhage [Recovered/Resolved]
